FAERS Safety Report 6028429-9 (Version None)
Quarter: 2009Q1

REPORT INFORMATION
  Report Type: 
  Country: None (occurrence: None)
  Receive Date: 20090106
  Receipt Date: 20081229
  Transmission Date: 20090719
  Serious: No
  Sender: FDA-Public Use
  Company Number: US-BAYER-200841782NA

PATIENT
  Age: 34 Year
  Sex: Female
  Weight: 66 kg

DRUGS (4)
  1. MIRENA [Suspect]
     Indication: CONTRACEPTION
     Route: 015
     Dates: start: 20020101
  2. MIRENA [Suspect]
     Dosage: AS USED: 20 ?G
     Route: 015
     Dates: start: 20080801
  3. THYROID MEDICATIONS [Concomitant]
  4. BENADRYL [Concomitant]

REACTIONS (5)
  - INSOMNIA [None]
  - MIGRAINE [None]
  - MOOD SWINGS [None]
  - NIGHT SWEATS [None]
  - WEIGHT INCREASED [None]
